FAERS Safety Report 5275681-3 (Version None)
Quarter: 2007Q1

REPORT INFORMATION
  Report Type: 
  Country: None (occurrence: None)
  Receive Date: 20061213
  Receipt Date: 20040404
  Transmission Date: 20070707
  Serious: Yes (Hospitalization)
  Sender: FDA-Public Use
  Company Number: 2004UW06725

PATIENT
  Age: 51 Year
  Sex: Male

DRUGS (2)
  1. SEROQUEL [Suspect]
     Dosage: 100 MG ONCE PO
     Route: 048
  2. CRACK COCAINE [Concomitant]

REACTIONS (1)
  - OVERDOSE [None]
